FAERS Safety Report 6703992-0 (Version None)
Quarter: 2010Q2

REPORT INFORMATION
  Report Type: 
  Country: None (occurrence: None)
  Receive Date: 20100430
  Receipt Date: 20100419
  Transmission Date: 20101027
  Serious: Yes (Death, Hospitalization)
  Sender: FDA-Public Use
  Company Number: US-WATSON-2010-05333

PATIENT
  Age: 84 Year
  Sex: Female
  Weight: 59 kg

DRUGS (19)
  1. COLCHICINE (WATSON LABORATORIES) [Suspect]
     Indication: GOUT
     Dosage: 2 TABLETS, DAILY
     Route: 065
     Dates: start: 20100308, end: 20100316
  2. ULORIC [Suspect]
     Indication: GOUT
     Dosage: 80 MG, DAILY
     Route: 048
  3. OMEPRAZOLE [Suspect]
     Indication: HELICOBACTER GASTRITIS
     Dosage: 2 TABLETS DAILY
     Route: 065
     Dates: start: 20100308, end: 20100318
  4. OMEPRAZOLE [Suspect]
     Indication: GASTRIC ULCER
  5. AMOXICILLIN [Suspect]
     Indication: HELICOBACTER GASTRITIS
     Dosage: 2 TABLETS DAILY
     Route: 065
     Dates: start: 20100310, end: 20100318
  6. AMOXICILLIN [Suspect]
     Indication: GASTRIC ULCER
  7. BIAXIN [Suspect]
     Indication: HELICOBACTER GASTRITIS
     Dosage: 2 TABLETS DAILY
     Route: 065
     Dates: start: 20100310, end: 20100318
  8. POTASSIUM [Concomitant]
     Indication: DRUG USE FOR UNKNOWN INDICATION
     Dosage: 10 MG, UNKNOWN
     Route: 065
  9. LIDOCAINE [Concomitant]
     Indication: PAIN
     Dosage: 1 PATCH, DAILY
     Route: 062
  10. REGLAN [Concomitant]
     Indication: DRUG USE FOR UNKNOWN INDICATION
     Dosage: 10 MG, AT BEDTIME
     Route: 065
     Dates: start: 20100318, end: 20100320
  11. MULTI-VITAMINS [Concomitant]
     Indication: DRUG USE FOR UNKNOWN INDICATION
     Dosage: UNKNOWN
     Route: 065
  12. TOPROL-XL [Concomitant]
     Indication: HYPERTENSION
     Dosage: 50 MG, DAILY
     Route: 065
  13. VYTRON C [Concomitant]
     Indication: DRUG USE FOR UNKNOWN INDICATION
     Dosage: 2 TABLETS DAILY
     Route: 065
  14. VICODIN [Concomitant]
     Indication: PAIN
     Dosage: 3 TABLETS DAILY AS REQUIRED
     Route: 048
  15. PEPTO-BISMOL [Concomitant]
     Indication: DIARRHOEA
     Dosage: AS NEEDED
     Route: 065
  16. ZOFRAN [Concomitant]
     Indication: NAUSEA
     Dosage: 4 MG, UNKNOWN
     Route: 042
     Dates: start: 20100317
  17. ZOFRAN [Concomitant]
     Indication: VOMITING
  18. LASIX [Concomitant]
     Indication: DRUG USE FOR UNKNOWN INDICATION
     Dosage: UNK
     Route: 065
     Dates: start: 20100301
  19. NEUPOGEN [Concomitant]
     Indication: DRUG USE FOR UNKNOWN INDICATION
     Dosage: UNK
     Route: 065
     Dates: start: 20100301

REACTIONS (13)
  - ATELECTASIS [None]
  - CARDIO-RESPIRATORY ARREST [None]
  - DEHYDRATION [None]
  - GOUT [None]
  - LYMPHOPROLIFERATIVE DISORDER [None]
  - NAUSEA [None]
  - NON-HODGKIN'S LYMPHOMA [None]
  - PANCYTOPENIA [None]
  - PNEUMONIA [None]
  - RENAL FAILURE ACUTE [None]
  - RESPIRATORY DISTRESS [None]
  - SEPSIS [None]
  - VOMITING [None]
